FAERS Safety Report 22388069 (Version 2)
Quarter: 2023Q4

REPORT INFORMATION
  Report Type: Report from Study
  Country: BR (occurrence: BR)
  Receive Date: 20230531
  Receipt Date: 20231115
  Transmission Date: 20240109
  Serious: Yes (Other)
  Sender: FDA-Public Use
  Company Number: BR-002147023-NVSC2023BR084180

PATIENT
  Age: 71 Year
  Sex: Female
  Weight: 85 kg

DRUGS (3)
  1. KISQALI [Suspect]
     Active Substance: RIBOCICLIB
     Indication: Breast cancer
     Dosage: UNK
     Route: 065
  2. KISQALI [Suspect]
     Active Substance: RIBOCICLIB
     Dosage: 3 DOSAGE FORM (IN THE MORNING)
     Route: 048
  3. PREGABALIN [Concomitant]
     Active Substance: PREGABALIN
     Indication: Paraesthesia
     Dosage: 150 MG (IN THE MORNING AND IN THE AFTERNOON)
     Route: 048

REACTIONS (25)
  - Syncope [Unknown]
  - Cough [Recovering/Resolving]
  - Pyrexia [Recovered/Resolved]
  - Ageusia [Recovered/Resolved]
  - Anosmia [Not Recovered/Not Resolved]
  - Rhinorrhoea [Recovered/Resolved]
  - Lip pain [Not Recovered/Not Resolved]
  - Paraesthesia [Not Recovered/Not Resolved]
  - Productive cough [Recovered/Resolved]
  - Headache [Recovered/Resolved]
  - Anxiety [Unknown]
  - COVID-19 [Unknown]
  - Increased appetite [Unknown]
  - Eye pain [Unknown]
  - Visual impairment [Unknown]
  - Weight increased [Unknown]
  - Fall [Unknown]
  - Muscular weakness [Unknown]
  - Lacrimation increased [Unknown]
  - Vomiting [Unknown]
  - Dehydration [Unknown]
  - Viral infection [Unknown]
  - Feeling abnormal [Unknown]
  - Tinnitus [Not Recovered/Not Resolved]
  - General physical health deterioration [Unknown]

NARRATIVE: CASE EVENT DATE: 20230415
